FAERS Safety Report 6147225-5 (Version None)
Quarter: 2009Q2

REPORT INFORMATION
  Report Type: 
  Country: None (occurrence: None)
  Receive Date: 20090408
  Receipt Date: 20080306
  Transmission Date: 20091009
  Serious: Yes (Hospitalization, Other)
  Sender: FDA-Public Use
  Company Number: US-ASTRAZENECA-2007UW08289

PATIENT
  Age: 15731 Day
  Sex: Male
  Weight: 109.8 kg

DRUGS (28)
  1. SEROQUEL [Suspect]
     Indication: SCHIZOPHRENIA
     Dosage: 200-400 MG
     Route: 048
     Dates: start: 20040601
  2. SEROQUEL [Suspect]
     Indication: DEPRESSION
     Dosage: 200-400 MG
     Route: 048
     Dates: start: 20040601
  3. SEROQUEL [Suspect]
     Dosage: 100MG-400MG
     Route: 048
     Dates: start: 20040601
  4. SEROQUEL [Suspect]
     Dosage: 100MG-400MG
     Route: 048
     Dates: start: 20040601
  5. HUMULIN R [Concomitant]
  6. DEPAKOTE [Concomitant]
  7. GLUCOPHAGE [Concomitant]
  8. PREVACID [Concomitant]
  9. BENICAR [Concomitant]
  10. GLUCOTROL [Concomitant]
  11. BENZTROPINE MESYLATE [Concomitant]
  12. NITROGLYCERIN [Concomitant]
  13. ZOCOR [Concomitant]
  14. METOPROLOL [Concomitant]
  15. NITROSTAT [Concomitant]
  16. MYLANTA ULTRA [Concomitant]
  17. COLACE [Concomitant]
  18. ATIVAN [Concomitant]
  19. HALDOL [Concomitant]
  20. GEODON [Concomitant]
  21. RISPERDAL [Concomitant]
  22. AMBIEN [Concomitant]
  23. KEFLEX [Concomitant]
  24. ASPIRIN [Concomitant]
  25. ASPIRIN [Concomitant]
  26. TYLENOL [Concomitant]
  27. ABILIFY [Concomitant]
  28. REGLAN [Concomitant]

REACTIONS (19)
  - ABDOMINAL PAIN UPPER [None]
  - ALCOHOL ABUSE [None]
  - ANAEMIA [None]
  - ANGINA PECTORIS [None]
  - CARDIAC FLUTTER [None]
  - CHEST DISCOMFORT [None]
  - CHEST PAIN [None]
  - CORONARY ARTERY DISEASE [None]
  - DIABETES MELLITUS [None]
  - DRUG ABUSE [None]
  - DYSPEPSIA [None]
  - DYSPNOEA [None]
  - GASTROOESOPHAGEAL REFLUX DISEASE [None]
  - HYPERTENSION [None]
  - MUSCULOSKELETAL CHEST PAIN [None]
  - OROPHARYNGEAL PAIN [None]
  - PSYCHIATRIC SYMPTOM [None]
  - SCHIZOAFFECTIVE DISORDER [None]
  - TYPE 2 DIABETES MELLITUS [None]
